FAERS Safety Report 4969893-3 (Version None)
Quarter: 2006Q1

REPORT INFORMATION
  Report Type: 
  Country: None (occurrence: None)
  Receive Date: 20060202
  Receipt Date: 20050707
  Transmission Date: 20060701
  Serious: Yes (Hospitalization)
  Sender: FDA-Public Use
  Company Number: US-2005-007363

PATIENT
  Age: 28 Year
  Sex: Female
  Weight: 63.9 kg

DRUGS (2)
  1. MIRENA [Suspect]
     Indication: CONTRACEPTION
     Dosage: 20 UG/DAY, CONT, INTRA-UTERINE
     Route: 015
     Dates: start: 20040209, end: 20050415
  2. PRENATAL VITAMINS (VITAMIN D NOS, RETINOL, NICOTINIC ACID, MINERALS NO [Concomitant]

REACTIONS (5)
  - DYSPAREUNIA [None]
  - PAIN [None]
  - POLYCYSTIC OVARIES [None]
  - UTERINE PERFORATION [None]
  - VULVOVAGINAL DRYNESS [None]
